FAERS Safety Report 4819362-6 (Version None)
Quarter: 2005Q4

REPORT INFORMATION
  Report Type: 
  Country: None (occurrence: None)
  Receive Date: 20051031
  Receipt Date: 20050804
  Transmission Date: 20060501
  Serious: No
  Sender: FDA-Public Use
  Company Number: 2005PV000819

PATIENT
  Age: 59 Year
  Sex: Male
  Weight: 124.2856 kg

DRUGS (10)
  1. SYMLIN [Suspect]
     Indication: DIABETES MELLITUS NON-INSULIN-DEPENDENT
     Dosage: 120 MCG; SC
     Route: 058
     Dates: start: 20050714
  2. AVANDIA [Concomitant]
  3. HUMALOG [Concomitant]
  4. LANTUS [Concomitant]
  5. VERAPAMIL [Concomitant]
  6. AMILORIDE [Concomitant]
  7. FUROSEMIDE [Concomitant]
  8. POTASSIUM CHLORIDE [Concomitant]
  9. PROTONIX [Concomitant]
  10. PRAVACHOL [Concomitant]

REACTIONS (1)
  - INJECTION SITE PAIN [None]
